FAERS Safety Report 9871660 (Version 1)
Quarter: 2014Q1

REPORT INFORMATION
  Report Type: Spontaneous
  Country: US (occurrence: US)
  Receive Date: 20140205
  Receipt Date: 20140205
  Transmission Date: 20141002
  Serious: No
  Sender: FDA-Public Use
  Company Number: US-SA-2013SA099959

PATIENT
  Sex: Female

DRUGS (2)
  1. ALLEGRA [Suspect]
     Route: 065
  2. ALLEGRA [Suspect]
     Route: 065

REACTIONS (2)
  - Oropharyngeal pain [Unknown]
  - Expired drug administered [Unknown]
